FAERS Safety Report 10485623 (Version 1)
Quarter: 2014Q4

REPORT INFORMATION
  Report Type: Spontaneous
  Country: US (occurrence: US)
  Receive Date: 20141001
  Receipt Date: 20141001
  Transmission Date: 20150528
  Serious: Yes (Other)
  Sender: FDA-Public Use
  Company Number: US-JNJCP-30000241547

PATIENT
  Sex: Female
  Weight: 66 kg

DRUGS (3)
  1. FOLIC ACID. [Concomitant]
     Active Substance: FOLIC ACID
     Dosage: ONE PILL PER DAY, FROM SEVEN WEEKS
  2. NEUTROGENA OIL FREE ACNE WASH PINK GRAPEFRUIT FACIAL CLEANSER [Suspect]
     Active Substance: SALICYLIC ACID
     Indication: REMOVAL OF INERT MATTER FROM SKIN OR SUBCUTANEOUS TISSUE
     Dosage: DIME SIZE AMOUNT, ONCE IN THE MORNING AND ONCE AT NIGHT
     Route: 061
     Dates: start: 20140906, end: 20140906
  3. MULTI- VITAMIN [Concomitant]
     Indication: PRENATAL CARE
     Dosage: ONE PILL PER DAY, FROM SEVEN WEEKS

REACTIONS (5)
  - Application site pain [Not Recovered/Not Resolved]
  - Application site swelling [Not Recovered/Not Resolved]
  - Application site rash [Not Recovered/Not Resolved]
  - Application site acne [Not Recovered/Not Resolved]
  - Exposure during pregnancy [Unknown]

NARRATIVE: CASE EVENT DATE: 20140906
